FAERS Safety Report 21503239 (Version 1)
Quarter: 2022Q4

REPORT INFORMATION
  Report Type: Spontaneous
  Country: US (occurrence: None)
  Receive Date: 20221024
  Receipt Date: 20221024
  Transmission Date: 20230113
  Serious: No
  Sender: FDA-Public Use
  Company Number: None

PATIENT
  Age: 92 Year
  Sex: Male
  Weight: 74.3 kg

DRUGS (10)
  1. CAPECITABINE [Suspect]
     Active Substance: CAPECITABINE
     Indication: Prostate cancer
     Dosage: OTHER FREQUENCY : Q12HOURS;?
     Route: 048
     Dates: start: 202107
  2. ASPIRIN [Concomitant]
  3. BRIMONIDINE [Concomitant]
  4. CALTRATE [Concomitant]
  5. DOROZOLAMIDE [Concomitant]
  6. FERROUS SULFATE [Concomitant]
  7. LATANOPROST [Concomitant]
  8. MONTELUKAST [Concomitant]
  9. VITAMIN B12 [Concomitant]
  10. ZOFRAN [Concomitant]

REACTIONS (1)
  - Disease progression [None]
